FAERS Safety Report 4356377-9 (Version None)
Quarter: 2004Q2

REPORT INFORMATION
  Report Type: 
  Country: None (occurrence: None)
  Receive Date: 20040506
  Receipt Date: 20040426
  Transmission Date: 20050107
  Serious: Yes (Death, Hospitalization)
  Sender: FDA-Public Use
  Company Number: US-JNJFOC-20040205899

PATIENT
  Age: 86 Year
  Sex: Female

DRUGS (14)
  1. INFLIXIMAB (INFLIXIMAB, RECOMBINANT) LYOPHILIZED POWDER [Suspect]
     Indication: RHEUMATOID ARTHRITIS
     Dosage: INTRAVENOUS
     Route: 042
     Dates: start: 20000506
  2. AGGRENOX [Concomitant]
  3. NORVASC [Concomitant]
  4. FEMEX (NAPROXEN SODIUM) [Concomitant]
  5. DARVOCET [Concomitant]
  6. NEXIUM [Concomitant]
  7. PREDNISONE [Concomitant]
  8. TOPROL (METOPROLOL SUCCINATE) [Concomitant]
  9. PROCRIT [Concomitant]
  10. MIACALCIN [Concomitant]
  11. ASPIRIN [Concomitant]
  12. GLYBURIDE [Concomitant]
  13. VITAMIN C (ASCORBIC ACID) [Concomitant]
  14. VITAMIN E [Concomitant]

REACTIONS (1)
  - CEREBROVASCULAR ACCIDENT [None]
